FAERS Safety Report 25917983 (Version 3)
Quarter: 2025Q4

REPORT INFORMATION
  Report Type: Report from Study
  Country: US (occurrence: US)
  Receive Date: 20251014
  Receipt Date: 20251216
  Transmission Date: 20260118
  Serious: Yes (Other)
  Sender: ACADIA PHARMACEUTICALS
  Company Number: US-ACADIA PHARMACEUTICALS INC.-ACA-2025-PIM-011194

PATIENT
  Sex: Male

DRUGS (16)
  1. NUPLAZID [Suspect]
     Active Substance: PIMAVANSERIN TARTRATE
     Indication: Parkinson^s disease psychosis
     Dosage: 34 MILLIGRAM, QD
     Route: 048
     Dates: start: 20250604
  2. ACETAMINOPHEN [Concomitant]
     Active Substance: ACETAMINOPHEN
     Dosage: UNK
  3. ATORVASTATIN [Concomitant]
     Active Substance: ATORVASTATIN
  4. BENZTROPINE [Concomitant]
     Active Substance: BENZTROPINE
  5. CARBIDOPA\LEVODOPA [Concomitant]
     Active Substance: CARBIDOPA\LEVODOPA
  6. CARVEDILOL [Concomitant]
     Active Substance: CARVEDILOL
  7. DICLOFENAC [Concomitant]
     Active Substance: DICLOFENAC
     Dosage: GEL 100GM (OTC)
  8. FLUTICASONE [Concomitant]
     Active Substance: FLUTICASONE
     Indication: Hypersensitivity
     Dosage: NASAL, SP
  9. FUROSEMIDE [Concomitant]
     Active Substance: FUROSEMIDE
  10. LOSARTAN [Concomitant]
     Active Substance: LOSARTAN
  11. MEMANTINE [Concomitant]
     Active Substance: MEMANTINE
  12. SELEGILINE [Concomitant]
     Active Substance: SELEGILINE
  13. SINEMET CR [Concomitant]
     Active Substance: CARBIDOPA\LEVODOPA
  14. TAMSULOSIN [Concomitant]
     Active Substance: TAMSULOSIN
  15. TESTOSTERONE CYPIONATE [Concomitant]
     Active Substance: TESTOSTERONE CYPIONATE
     Dosage: 200 MG/ML
  16. TRIAMCINOLONE [Concomitant]
     Active Substance: TRIAMCINOLONE
     Dosage: 15 GM

REACTIONS (4)
  - Hallucination [Unknown]
  - Memory impairment [Unknown]
  - Drug ineffective [Not Recovered/Not Resolved]
  - Product dose omission issue [Unknown]
